FAERS Safety Report 14229720 (Version 1)
Quarter: 2017Q4

REPORT INFORMATION
  Report Type: Spontaneous
  Country: US (occurrence: None)
  Receive Date: 20171127
  Receipt Date: 20171127
  Transmission Date: 20180321
  Serious: No
  Sender: FDA-Public Use
  Company Number: None

PATIENT
  Age: 25 Year
  Sex: Female

DRUGS (1)
  1. NORGESTIMATE-ETHINYL ESTRADIOL 0.18/0.215/0.25 [Suspect]
     Active Substance: ETHINYL ESTRADIOL\NORGESTIMATE
     Indication: CONTRACEPTION
     Route: 048
     Dates: start: 20170219, end: 20170915

REACTIONS (3)
  - Acne [None]
  - Product substitution issue [None]
  - Affect lability [None]
